FAERS Safety Report 12073487 (Version 5)
Quarter: 2020Q3

REPORT INFORMATION
  Report Type: Report from Study
  Country: US (occurrence: US)
  Receive Date: 20160212
  Receipt Date: 20200814
  Transmission Date: 20201102
  Serious: Yes (Death, Hospitalization, Other)
  Sender: FDA-Public Use
  Company Number: US-ACTELION-A-NJ2016-131230

PATIENT
  Age: 74 Year
  Sex: Female

DRUGS (13)
  1. AMIODARONE [Concomitant]
     Active Substance: AMIODARONE
     Dosage: 200 MG, QD
  2. ALLOPURINOL. [Concomitant]
     Active Substance: ALLOPURINOL
     Dosage: 100 MG, QD
  3. SYNTHROID [Concomitant]
     Active Substance: LEVOTHYROXINE SODIUM
  4. ADVAIR HFA [Concomitant]
     Active Substance: FLUTICASONE PROPIONATE\SALMETEROL XINAFOATE
     Dosage: UNK
  5. WARFARIN [Concomitant]
     Active Substance: WARFARIN
  6. RIOCIGUAT. [Concomitant]
     Active Substance: RIOCIGUAT
     Dosage: 1 MG, TID
  7. LEVOTHYROXINE. [Concomitant]
     Active Substance: LEVOTHYROXINE
     Dosage: 50 MCG, QD
  8. BUMEX [Concomitant]
     Active Substance: BUMETANIDE
  9. DIGOXIN. [Concomitant]
     Active Substance: DIGOXIN
     Dosage: 125 MCG, QD
  10. OPSUMIT [Suspect]
     Active Substance: MACITENTAN
     Indication: PULMONARY HYPERTENSION
     Dosage: 10 MG, QD
     Route: 048
     Dates: start: 20150402
  11. ADCIRCA [Concomitant]
     Active Substance: TADALAFIL
  12. ATORVASTATIN [Concomitant]
     Active Substance: ATORVASTATIN
     Dosage: 10 MG, QPM
  13. TORSEMIDE. [Concomitant]
     Active Substance: TORSEMIDE

REACTIONS (12)
  - Cardiac failure congestive [Fatal]
  - Renal tubular necrosis [Unknown]
  - Pulmonary arterial hypertension [Unknown]
  - Urinary tract infection [Unknown]
  - Acute kidney injury [Recovered/Resolved]
  - Condition aggravated [Unknown]
  - Tubulointerstitial nephritis [Unknown]
  - Sepsis [Unknown]
  - Back pain [Unknown]
  - Hypotension [Unknown]
  - Fluid overload [Unknown]
  - Gallbladder disorder [Unknown]

NARRATIVE: CASE EVENT DATE: 20160126
